FAERS Safety Report 4542817-9 (Version None)
Quarter: 2004Q4

REPORT INFORMATION
  Report Type: 
  Country: None (occurrence: None)
  Receive Date: 20041229
  Receipt Date: 20041215
  Transmission Date: 20050328
  Serious: Yes (Other)
  Sender: FDA-Public Use
  Company Number: 8008351

PATIENT
  Age: 70 Year
  Sex: Female

DRUGS (5)
  1. KEPPRA [Suspect]
     Indication: CONVULSION
     Dosage: 500 MG 2/D PO
     Route: 048
     Dates: start: 20041210
  2. CHEMOTHERAPY [Concomitant]
  3. DILANTIN [Concomitant]
  4. ATIVAN [Concomitant]
  5. OXYCODONE HCL [Concomitant]

REACTIONS (1)
  - PANCYTOPENIA [None]
